FAERS Safety Report 15434974 (Version 1)
Quarter: 2018Q3

REPORT INFORMATION
  Report Type: Spontaneous
  Country: US (occurrence: US)
  Receive Date: 20180923
  Receipt Date: 20180923
  Transmission Date: 20181010
  Serious: No
  Sender: FDA-Public Use
  Company Number: None

PATIENT
  Age: 60 Year
  Sex: Female
  Weight: 78.75 kg

DRUGS (3)
  1. CREST PRO?HEALTH CLINICAL [Suspect]
     Active Substance: CETYLPYRIDINIUM CHLORIDE
     Indication: DENTAL PLAQUE
     Route: 048
     Dates: start: 20180916, end: 20180923
  2. IBUPROFEN. [Concomitant]
     Active Substance: IBUPROFEN
  3. CREST PRO?HEALTH CLINICAL [Suspect]
     Active Substance: CETYLPYRIDINIUM CHLORIDE
     Indication: DENTAL DISORDER PROPHYLAXIS
     Route: 048
     Dates: start: 20180916, end: 20180923

REACTIONS (3)
  - Oral discomfort [None]
  - Tongue discomfort [None]
  - Oral pain [None]

NARRATIVE: CASE EVENT DATE: 20180921
